FAERS Safety Report 9094272 (Version 1)
Quarter: 2013Q1

REPORT INFORMATION
  Report Type: Spontaneous
  Country: US (occurrence: None)
  Receive Date: 20130122
  Receipt Date: 20130122
  Transmission Date: 20140127
  Serious: Yes (Death)
  Sender: FDA-Public Use
  Company Number: 1552652

PATIENT
  Age: 45 Year
  Sex: Male

DRUGS (7)
  1. CODEINE [Suspect]
  2. OXYCODONE [Suspect]
  3. ACETAMINOPHEN / HYDROCODONE [Suspect]
  4. ETHANOL [Suspect]
  5. BUTALBITAL [Suspect]
  6. CAFFEINE [Suspect]
  7. TEMAZEPAM [Suspect]

REACTIONS (2)
  - Drug abuse [None]
  - Poisoning [None]
